APPROVED DRUG PRODUCT: ACEBUTOLOL HYDROCHLORIDE
Active Ingredient: ACEBUTOLOL HYDROCHLORIDE
Strength: EQ 200MG BASE
Dosage Form/Route: CAPSULE;ORAL
Application: A075047 | Product #001 | TE Code: AB
Applicant: AMNEAL PHARMACEUTICAL
Approved: Dec 30, 1999 | RLD: No | RS: Yes | Type: RX